FAERS Safety Report 10184977 (Version 2)
Quarter: 2014Q2

REPORT INFORMATION
  Report Type: Spontaneous
  Country: GB (occurrence: None)
  Receive Date: 20140519
  Receipt Date: 20140521
  Transmission Date: 20141212
  Serious: Yes (Hospitalization, Other)
  Sender: FDA-Public Use
  Company Number: AUR-APL-2014-05614

PATIENT
  Age: 79 Year
  Sex: Female
  Weight: 82 kg

DRUGS (17)
  1. LISINOPRIL [Suspect]
     Indication: HYPERTENSION
     Route: 048
     Dates: start: 2009, end: 20140422
  2. SERTRALINE (SERTRALINE) [Suspect]
     Indication: DEPRESSION
     Route: 048
     Dates: start: 20140417, end: 20140422
  3. INDAPAMIDE (INDAPAMIDE) [Suspect]
     Indication: HYPERTENSION
     Route: 048
     Dates: start: 20140407, end: 20140421
  4. LANSOPRAZOLE (LANSOPRAZOLE) [Suspect]
     Indication: GASTROOESOPHAGEAL REFLUX PROPHYLAXIS
     Route: 048
     Dates: end: 20140422
  5. ATORVASTATIN (ATORVASTATIN) [Concomitant]
  6. CYCLIZINE [Concomitant]
  7. DICLOFENAC DIETHYLAMINE [Concomitant]
  8. FERROUS FUMARATE [Concomitant]
  9. GAVISCON ADVANCE [Concomitant]
  10. GLIPIZIDE (GLIPIZIDE) [Concomitant]
  11. HYDROXCOBALAMIN [Concomitant]
  12. LOPERAMIDE [Concomitant]
  13. METFORMIN (METFORMIN) [Concomitant]
  14. PARACETAMOL (PARACETAMOL) [Concomitant]
  15. PREDNISOLONE (PREDNISOLONE) [Concomitant]
  16. SAXAGLIPTIN [Concomitant]
  17. TRIMETHOPRIM (TRIMETHOPRIM) [Concomitant]

REACTIONS (5)
  - Hyponatraemia [None]
  - Nausea [None]
  - Somnolence [None]
  - Confusional state [None]
  - Inappropriate antidiuretic hormone secretion [None]
